FAERS Safety Report 8573983-6 (Version None)
Quarter: 2012Q3

REPORT INFORMATION
  Report Type: 
  Country: None (occurrence: None)
  Receive Date: 20120806
  Receipt Date: 20120725
  Transmission Date: 20120928
  Serious: Yes (Hospitalization, Other)
  Sender: FDA-Public Use
  Company Number: US-PFIZER INC-2012189300

PATIENT
  Age: 59 Year
  Sex: Male

DRUGS (27)
  1. SUNITINIB MALATE [Suspect]
     Indication: METASTATIC RENAL CELL CARCINOMA
     Dosage: UNK
     Dates: start: 20120202
  2. MAGNESIUM [Concomitant]
     Indication: SUPPLEMENTATION THERAPY
  3. MULTIVITAMIN WITH IRON [Concomitant]
     Indication: SUPPLEMENTATION THERAPY
  4. LISINOPRIL [Concomitant]
     Indication: HYPERTENSION
  5. NAPROXEN [Concomitant]
     Indication: PAIN
  6. HYDROCHLOROTHIAZIDE [Concomitant]
     Indication: HYPERTENSION
  7. LASIX [Concomitant]
     Indication: HYPERTENSION
  8. ASPIRIN [Concomitant]
     Indication: CARDIOVASCULAR EVENT PROPHYLAXIS
  9. GLIMEPIRIDE [Concomitant]
     Indication: TYPE 2 DIABETES MELLITUS
  10. NAPROXEN [Concomitant]
     Indication: ARTHRALGIA
     Dosage: UNK
  11. AMLODIPINE [Concomitant]
     Indication: HYPERTENSION
  12. NYSTATIN [Concomitant]
     Indication: RASH
  13. IBUPROFEN [Concomitant]
     Indication: ARTHRALGIA
     Dosage: UNK
  14. GLUCOPHAGE [Concomitant]
     Indication: TYPE 2 DIABETES MELLITUS
  15. HYDROCORTISONE ACETATE [Concomitant]
     Indication: HAEMORRHOIDS
  16. SIMVASTATIN [Concomitant]
     Indication: HYPERCHOLESTEROLAEMIA
  17. CLARITIN [Concomitant]
     Indication: NASAL CONGESTION
     Dosage: UNK
  18. OMEPRAZOLE [Concomitant]
     Indication: GASTROOESOPHAGEAL REFLUX DISEASE
  19. ZOFRAN [Concomitant]
     Indication: NAUSEA
  20. CYCLOPHOSPHAMIDE [Suspect]
     Dosage: UNK
     Dates: start: 20120323
  21. IMA901 [Suspect]
     Dosage: UNK
     Dates: start: 20120326
  22. VITAMIN D [Concomitant]
     Indication: SUPPLEMENTATION THERAPY
  23. FORADIL INHALER [Concomitant]
     Indication: ASTHMA
  24. CLARITIN [Concomitant]
     Indication: SEASONAL ALLERGY
  25. COMPAZINE [Concomitant]
     Indication: NAUSEA
  26. GRANULOCYTE MACROPHAGE COLONY STIM FACTOR [Suspect]
     Dosage: UNK
     Dates: start: 20120326
  27. ATENOLOL [Concomitant]
     Indication: HYPERTENSION

REACTIONS (1)
  - RESPIRATORY FAILURE [None]
